FAERS Safety Report 5224886-6 (Version None)
Quarter: 2007Q1

REPORT INFORMATION
  Report Type: 
  Country: None (occurrence: None)
  Receive Date: 20070126
  Receipt Date: 20070118
  Transmission Date: 20070707
  Serious: Yes (Hospitalization, Other)
  Sender: FDA-Public Use
  Company Number: 2007SP001151

PATIENT
  Sex: Female

DRUGS (1)
  1. INTERFERON [Suspect]
     Indication: HEPATITIS C
     Dosage: SC
     Route: 058

REACTIONS (13)
  - AGGRESSION [None]
  - ALOPECIA [None]
  - ANGER [None]
  - DISTURBANCE IN ATTENTION [None]
  - HERPES SIMPLEX [None]
  - HOMICIDAL IDEATION [None]
  - NAIL INFECTION [None]
  - ORAL PAIN [None]
  - PRURITUS [None]
  - PRURITUS GENITAL [None]
  - RASH [None]
  - RASH PRURITIC [None]
  - TONGUE DISORDER [None]
